FAERS Safety Report 9011904 (Version 1)
Quarter: 2013Q1

REPORT INFORMATION
  Report Type: Spontaneous
  Country: US (occurrence: US)
  Receive Date: 20130114
  Receipt Date: 20130114
  Transmission Date: 20140127
  Serious: Yes (Hospitalization)
  Sender: FDA-Public Use
  Company Number: US-BIOGENIDEC-166735

PATIENT
  Age: 45 Year
  Sex: Male
  Weight: 88 kg

DRUGS (7)
  1. AVONEX [Suspect]
     Indication: MULTIPLE SCLEROSIS
     Route: 030
     Dates: start: 199802
  2. AVONEX [Suspect]
     Indication: MULTIPLE SCLEROSIS
     Route: 030
  3. AVONEX [Suspect]
     Indication: MULTIPLE SCLEROSIS
     Route: 030
  4. IBUPROFEN [Concomitant]
     Indication: OSTEOARTHRITIS
  5. VALIUM [Concomitant]
     Indication: MULTIPLE SCLEROSIS
     Dates: start: 1998
  6. VICODIN [Concomitant]
     Indication: OSTEOARTHRITIS
  7. MODAFINIL [Concomitant]
     Indication: MULTIPLE SCLEROSIS
     Dates: start: 200207

REACTIONS (22)
  - Coma [Recovered/Resolved]
  - Petit mal epilepsy [Recovered/Resolved]
  - Mental disorder [Unknown]
  - Knee operation [Recovered/Resolved]
  - Respiratory arrest [Recovered/Resolved]
  - Sleep apnoea syndrome [Unknown]
  - Grand mal convulsion [Recovered/Resolved]
  - Lung infection [Recovered/Resolved]
  - Medical device complication [Not Recovered/Not Resolved]
  - Quadriplegia [Not Recovered/Not Resolved]
  - Cognitive disorder [Not Recovered/Not Resolved]
  - Bipolar disorder [Not Recovered/Not Resolved]
  - Post-traumatic stress disorder [Not Recovered/Not Resolved]
  - Hypertension [Recovered/Resolved]
  - Blood cholesterol increased [Not Recovered/Not Resolved]
  - Osteoarthritis [Not Recovered/Not Resolved]
  - Hypoaesthesia [Not Recovered/Not Resolved]
  - Vein disorder [Not Recovered/Not Resolved]
  - Tinea infection [Recovered/Resolved]
  - Memory impairment [Not Recovered/Not Resolved]
  - Visual acuity reduced [Not Recovered/Not Resolved]
  - Asthenia [Not Recovered/Not Resolved]
